FAERS Safety Report 18404102 (Version 2)
Quarter: 2020Q4

REPORT INFORMATION
  Report Type: Spontaneous
  Country: IT (occurrence: IT)
  Receive Date: 20201020
  Receipt Date: 20201127
  Transmission Date: 20210114
  Serious: Yes (Death, Other)
  Sender: FDA-Public Use
  Company Number: IT-009507513-2010ITA004198

PATIENT
  Age: 90 Year
  Sex: Female

DRUGS (2)
  1. MEROPENEM. [Suspect]
     Active Substance: MEROPENEM
     Indication: KLEBSIELLA SEPSIS
     Dosage: 500 MILLIGRAM, QD
     Route: 042
     Dates: start: 20200919, end: 20200921
  2. INVANZ [Suspect]
     Active Substance: ERTAPENEM SODIUM
     Indication: KLEBSIELLA SEPSIS
     Route: 042
     Dates: start: 20200921, end: 20200922

REACTIONS (2)
  - Hepatitis [Fatal]
  - Hepatic enzyme increased [Fatal]

NARRATIVE: CASE EVENT DATE: 20200921
